FAERS Safety Report 9565976 (Version 1)
Quarter: 2013Q3

REPORT INFORMATION
  Report Type: Spontaneous
  Country: PT (occurrence: PT)
  Receive Date: 20130930
  Receipt Date: 20130930
  Transmission Date: 20140515
  Serious: Yes (Life-Threatening, Hospitalization)
  Sender: FDA-Public Use
  Company Number: PT-TEVA-433969ISR

PATIENT
  Age: 37 Year
  Sex: Female
  Weight: 63 kg

DRUGS (20)
  1. VINCRISTINA TEVA 1 MG/ML SOLUCAO INJECTAVEL [Suspect]
     Indication: ACUTE LYMPHOCYTIC LEUKAEMIA
     Route: 042
     Dates: start: 20081111, end: 20081118
  2. ASPARAGINASE [Interacting]
     Indication: ACUTE LYMPHOCYTIC LEUKAEMIA
     Route: 030
     Dates: start: 20081111, end: 20081118
  3. DOXORRUBICINA APS 2 MG/ML, CONCENTRADO PARA SOLUCAO PARA PERFUSAO [Concomitant]
     Indication: NEOPLASM
     Route: 042
     Dates: start: 20081111, end: 20081118
  4. TRAMADOL [Concomitant]
     Dosage: 300 MILLIGRAM DAILY;
     Route: 042
     Dates: start: 20081117
  5. OMEPRAZOLE [Concomitant]
     Dosage: 40 MILLIGRAM DAILY;
     Route: 042
     Dates: start: 20081103
  6. ACICLOVIR [Concomitant]
     Dosage: 800 MILLIGRAM DAILY;
     Route: 048
     Dates: start: 20081103
  7. CO-TRIMOXAZOLE [Concomitant]
     Dosage: 960 MILLIGRAM DAILY;
     Route: 048
     Dates: start: 20081104
  8. FLUOXETINE [Concomitant]
     Dosage: 20 MILLIGRAM DAILY;
     Route: 048
     Dates: start: 20081103
  9. ALLOPURINOL [Concomitant]
     Dosage: 300 MILLIGRAM DAILY;
     Route: 048
     Dates: start: 20081103
  10. BROMAZEPAM [Concomitant]
     Dosage: 3 MILLIGRAM DAILY;
     Route: 048
     Dates: start: 20081103
  11. ETHINYL ESTRADIOL+LEVONORGESTREL [Concomitant]
     Dosage: 1 DOSAGE FORMS DAILY; 0.15MG ETHINYL ESTRADIOL+LEVONORGESTREL 0.03MG
     Route: 048
     Dates: start: 20081103
  12. ALUMINUM HYDROXIDE [Concomitant]
     Dosage: 1600 MILLIGRAM DAILY;
     Route: 048
     Dates: start: 20081103, end: 20081106
  13. FUROSEMIDE [Concomitant]
     Dosage: 40 MILLIGRAM DAILY;
     Route: 042
     Dates: start: 20081011, end: 20081104
  14. FUROSEMIDE [Concomitant]
     Dosage: 40 MILLIGRAM DAILY;
     Route: 048
     Dates: start: 20081104
  15. IMIPENEM, CILASTATIN [Concomitant]
     Dosage: 4 DOSAGE FORMS DAILY; IMIPENEM 500 MG, CILASTATIN 500 MG
     Route: 042
     Dates: start: 20081104, end: 20081110
  16. LACTULOSE [Concomitant]
     Dosage: 7.5 MILLIGRAM DAILY;
     Route: 048
     Dates: start: 20081106, end: 20081110
  17. IMATINIB [Concomitant]
     Dosage: 600 MILLIGRAM DAILY;
     Route: 048
     Dates: start: 20081106
  18. DEXAMETHASONE [Concomitant]
     Dosage: 20 MILLIGRAM DAILY;
     Route: 042
     Dates: start: 20081110, end: 20081110
  19. PREDNISOLONE [Concomitant]
     Dosage: 20 MILLIGRAM DAILY;
     Route: 048
     Dates: start: 20081111
  20. FLUCONAZOLE [Concomitant]
     Dosage: 200 MILLIGRAM DAILY;
     Route: 042
     Dates: start: 20081117

REACTIONS (9)
  - Ileus paralytic [Recovered/Resolved]
  - Altered state of consciousness [Recovered/Resolved]
  - Confusional state [Recovered/Resolved]
  - Fatigue [Recovered/Resolved]
  - Somnolence [Recovered/Resolved]
  - Myalgia [Recovered/Resolved]
  - Hypofibrinogenaemia [Recovered/Resolved]
  - Bradyphrenia [Recovered/Resolved]
  - Drug interaction [Recovered/Resolved]
